FAERS Safety Report 8996232 (Version 1)
Quarter: 2013Q1

REPORT INFORMATION
  Report Type: Spontaneous
  Country: US (occurrence: US)
  Receive Date: 20130103
  Receipt Date: 20130103
  Transmission Date: 20140127
  Serious: Yes (Other)
  Sender: FDA-Public Use
  Company Number: US-MYLANLABS-2012S1026424

PATIENT
  Age: 64 Year
  Sex: Female

DRUGS (2)
  1. FORMOTEROL [Suspect]
     Route: 065
  2. LORMETAZEPAM [Suspect]
     Route: 065

REACTIONS (1)
  - Drug-induced liver injury [Unknown]
